FAERS Safety Report 14919622 (Version 1)
Quarter: 2018Q2

REPORT INFORMATION
  Report Type: Spontaneous
  Country: US (occurrence: US)
  Receive Date: 20180502
  Receipt Date: 20180502
  Transmission Date: 20180711
  Serious: Yes (Death)
  Sender: FDA-Public Use
  Company Number: None

PATIENT
  Age: 71 Year
  Sex: Female

DRUGS (4)
  1. LEVOTHYROXINE 50MCG [Concomitant]
     Active Substance: LEVOTHYROXINE
  2. VITAMIN D 50,000 UNITS [Concomitant]
  3. ENBREL [Suspect]
     Active Substance: ETANERCEPT
     Dosage: ?          OTHER FREQUENCY:ONCE A WEEK;?
     Route: 058
  4. CLOPIDOGREL [Concomitant]
     Active Substance: CLOPIDOGREL BISULFATE

REACTIONS (1)
  - Death [None]

NARRATIVE: CASE EVENT DATE: 20180429
